FAERS Safety Report 16807078 (Version 2)
Quarter: 2019Q3

REPORT INFORMATION
  Report Type: Spontaneous
  Country: IT (occurrence: IT)
  Receive Date: 20190913
  Receipt Date: 20190926
  Transmission Date: 20191005
  Serious: Yes (Other)
  Sender: FDA-Public Use
  Company Number: IT-GLAXOSMITHKLINE-IT2019164782

PATIENT
  Sex: Male

DRUGS (1)
  1. NUCALA [Suspect]
     Active Substance: MEPOLIZUMAB
     Indication: PRODUCT USED FOR UNKNOWN INDICATION
     Dosage: UNK

REACTIONS (7)
  - Atrial fibrillation [Unknown]
  - Neuralgia [Unknown]
  - Depression [Unknown]
  - Asthma [Unknown]
  - Herpes zoster [Recovering/Resolving]
  - Musculoskeletal pain [Unknown]
  - Cardiac disorder [Unknown]
